FAERS Safety Report 4327855-3 (Version None)
Quarter: 2004Q1

REPORT INFORMATION
  Report Type: 
  Country: None (occurrence: None)
  Receive Date: 20040325
  Receipt Date: 20040309
  Transmission Date: 20041129
  Serious: Yes (Hospitalization)
  Sender: FDA-Public Use
  Company Number: 230003M04NOR

PATIENT
  Age: 44 Year
  Sex: Male

DRUGS (1)
  1. REBIF [Suspect]
     Indication: MULTIPLE SCLEROSIS
     Dosage: 22 MCG, 1 IN 2 DAYS, SUBCUTANEOUS
     Route: 058
     Dates: start: 20011010

REACTIONS (4)
  - ABSCESS [None]
  - ERYTHEMA [None]
  - OEDEMA PERIPHERAL [None]
  - PAIN IN EXTREMITY [None]
